FAERS Safety Report 25478448 (Version 2)
Quarter: 2025Q3

REPORT INFORMATION
  Report Type: Spontaneous
  Country: AU (occurrence: AU)
  Receive Date: 20250625
  Receipt Date: 20250925
  Transmission Date: 20251021
  Serious: Yes (Other)
  Sender: GLAXOSMITHKLINE
  Company Number: AU-GLAXOSMITHKLINE INC-AU2025APC033364

PATIENT
  Sex: Female

DRUGS (2)
  1. MEPOLIZUMAB [Suspect]
     Active Substance: MEPOLIZUMAB
     Indication: Asthma
  2. MEPOLIZUMAB [Suspect]
     Active Substance: MEPOLIZUMAB
     Indication: Hypereosinophilic syndrome
     Dosage: 300 MG, Q4W

REACTIONS (6)
  - Hypereosinophilic syndrome [Unknown]
  - Condition aggravated [Unknown]
  - Mental impairment [Unknown]
  - Asthma [Unknown]
  - Drug ineffective [Unknown]
  - Therapy partial responder [Unknown]
